FAERS Safety Report 6311896-0 (Version None)
Quarter: 2009Q3

REPORT INFORMATION
  Report Type: 
  Country: None (occurrence: None)
  Receive Date: 20090817
  Receipt Date: 20090807
  Transmission Date: 20100115
  Serious: Yes (Hospitalization)
  Sender: FDA-Public Use
  Company Number: FR-ELI_LILLY_AND_COMPANY-FR200908001512

PATIENT
  Age: 69 Year
  Sex: Male

DRUGS (8)
  1. EFFIENT [Suspect]
     Route: 048
     Dates: start: 20090401
  2. KARDEGIC /00002703/ [Concomitant]
     Dosage: 75 MG, DAILY (1/D)
     Route: 048
  3. MOPRAL [Concomitant]
     Dosage: 20 MG, DAILY (1/D)
     Route: 048
  4. TAHOR [Concomitant]
     Dosage: 20 MG, DAILY (1/D)
     Route: 048
  5. FORLAX [Concomitant]
  6. STILNOX [Concomitant]
     Route: 048
  7. ACTISKENAN [Concomitant]
  8. SKENAN [Concomitant]
     Route: 048

REACTIONS (10)
  - APLASTIC ANAEMIA [None]
  - GENERAL PHYSICAL HEALTH DETERIORATION [None]
  - KAPOSI'S SARCOMA [None]
  - LIVER DISORDER [None]
  - LUNG DISORDER [None]
  - MALIGNANT NEOPLASM PROGRESSION [None]
  - MULTI-ORGAN DISORDER [None]
  - NORMOCHROMIC NORMOCYTIC ANAEMIA [None]
  - SPLENOMEGALY [None]
  - THROMBOCYTOPENIA [None]
